FAERS Safety Report 4279683-5 (Version None)
Quarter: 2004Q1

REPORT INFORMATION
  Report Type: 
  Country: None (occurrence: None)
  Receive Date: 20040122
  Receipt Date: 20040114
  Transmission Date: 20041129
  Serious: Yes (Other)
  Sender: FDA-Public Use
  Company Number: 2004194353AT

PATIENT
  Age: 21 Year
  Sex: Male

DRUGS (18)
  1. FRAGMIN [Suspect]
     Indication: ANTICOAGULANT THERAPY
     Dosage: SEE IMAGE
     Route: 058
     Dates: start: 20030313, end: 20030319
  2. FRAGMIN [Suspect]
     Indication: ANTICOAGULANT THERAPY
     Dosage: SEE IMAGE
     Route: 058
     Dates: start: 20030320
  3. DEPAKENE [Suspect]
     Dosage: SEE IMAGE
     Route: 042
     Dates: start: 20030314, end: 20030315
  4. DEPAKENE [Suspect]
     Dosage: SEE IMAGE
     Route: 042
     Dates: start: 20030316, end: 20030316
  5. DEPAKENE [Suspect]
     Dosage: SEE IMAGE
     Route: 042
     Dates: start: 20030317, end: 20030318
  6. DEPAKENE [Suspect]
     Dosage: SEE IMAGE
     Route: 042
     Dates: start: 20030319, end: 20030320
  7. DEPAKENE [Suspect]
     Dosage: SEE IMAGE
     Route: 042
     Dates: start: 20030321, end: 20030321
  8. DEPAKENE [Suspect]
     Dosage: SEE IMAGE
     Route: 042
     Dates: start: 20030322, end: 20030322
  9. HALDOL [Suspect]
     Indication: SCHIZOPHRENIA, PARANOID TYPE
     Dosage: 5 MG, DAILY, IV
     Route: 042
     Dates: start: 20030316, end: 20030321
  10. HALDOL [Suspect]
     Indication: SCHIZOPHRENIA, PARANOID TYPE
     Dosage: 5 MG, DAILY, IV
     Route: 042
     Dates: start: 20030322, end: 20030329
  11. SEROQUEL [Suspect]
     Indication: SCHIZOPHRENIA, PARANOID TYPE
     Dosage: 600 MG, DAILY, ORAL
     Route: 048
     Dates: start: 20030314, end: 20030315
  12. SEROQUEL [Suspect]
     Indication: SCHIZOPHRENIA, PARANOID TYPE
     Dosage: 600 MG, DAILY, ORAL
     Route: 048
     Dates: start: 20030316, end: 20030319
  13. SEROQUEL [Suspect]
     Indication: SCHIZOPHRENIA, PARANOID TYPE
     Dosage: 600 MG, DAILY, ORAL
     Route: 048
     Dates: start: 20030320, end: 20030321
  14. PANTOPRAZOLE SODIUM (PANTOPRAZOLE SODIUM) [Suspect]
     Indication: GASTROINTESTINAL DISORDER
     Dosage: 40 MG, DAILY, IV
     Route: 042
     Dates: start: 20030313, end: 20030320
  15. RIVOTRIL [Concomitant]
  16. AKINETON RETARD [Concomitant]
  17. ENTUMIN (CLOTIAPINE) [Concomitant]
  18. MAGNESIUM [Concomitant]

REACTIONS (5)
  - ALANINE AMINOTRANSFERASE INCREASED [None]
  - ASPARTATE AMINOTRANSFERASE INCREASED [None]
  - BLOOD ALKALINE PHOSPHATASE INCREASED [None]
  - GAMMA-GLUTAMYLTRANSFERASE INCREASED [None]
  - HEPATIC ENZYME INCREASED [None]
